FAERS Safety Report 25144664 (Version 1)
Quarter: 2025Q2

REPORT INFORMATION
  Report Type: Spontaneous
  Country: CA (occurrence: CA)
  Receive Date: 20250401
  Receipt Date: 20250401
  Transmission Date: 20250717
  Serious: Yes (Death, Life-Threatening, Hospitalization, Disabling, Congenital Anomaly, Other)
  Sender: Haleon PLC
  Company Number: CA-002147023-NVSC2025CA051610

PATIENT
  Age: 40 Year
  Sex: Female
  Weight: 73 kg

DRUGS (119)
  1. VOLTAREN [Suspect]
     Active Substance: DICLOFENAC SODIUM
     Indication: Product used for unknown indication
     Route: 065
  2. CELEBREX [Suspect]
     Active Substance: CELECOXIB
     Indication: Product used for unknown indication
     Route: 050
  3. CELEBREX [Suspect]
     Active Substance: CELECOXIB
     Route: 050
  4. CELEBREX [Suspect]
     Active Substance: CELECOXIB
     Route: 050
  5. CELEBREX [Suspect]
     Active Substance: CELECOXIB
     Route: 050
  6. NAPROXEN [Suspect]
     Active Substance: NAPROXEN
     Indication: Product used for unknown indication
     Route: 065
  7. RITUXAN [Suspect]
     Active Substance: RITUXIMAB
     Indication: Rheumatoid arthritis
     Route: 050
  8. RITUXAN [Suspect]
     Active Substance: RITUXIMAB
     Dosage: 1 G, Q12H
     Route: 065
  9. RITUXAN [Suspect]
     Active Substance: RITUXIMAB
     Dosage: 1 G, Q24H (NOT OTHERWISE SPECIFIED)
     Route: 050
  10. RITUXAN [Suspect]
     Active Substance: RITUXIMAB
     Dosage: 1 G, Q12H (NOT OTHERWISE SPECIFIED)
     Route: 050
  11. RITUXAN [Suspect]
     Active Substance: RITUXIMAB
     Dosage: 1000 MG, BID (NOT OTHERWISE SPECIFIED)
     Route: 050
  12. RITUXAN [Suspect]
     Active Substance: RITUXIMAB
     Route: 050
  13. RITUXAN [Suspect]
     Active Substance: RITUXIMAB
     Dosage: 1 G, Q12H (NOT OTHERWISE SPECIFIED)
     Route: 050
  14. RITUXAN [Suspect]
     Active Substance: RITUXIMAB
     Route: 050
  15. RITUXAN [Suspect]
     Active Substance: RITUXIMAB
     Route: 065
  16. RITUXAN [Suspect]
     Active Substance: RITUXIMAB
     Route: 050
  17. RITUXAN [Suspect]
     Active Substance: RITUXIMAB
     Dosage: 2000 MG, (NOT OTHERWISE SPECIFIED)
     Route: 050
  18. RITUXAN [Suspect]
     Active Substance: RITUXIMAB
     Dosage: 2 G, Q24H (NOT OTHERWISE SPECIFIED)
     Route: 050
  19. RITUXAN [Suspect]
     Active Substance: RITUXIMAB
     Dosage: 1 G, BID (NOT OTHERWISE SPECIFIED)
     Route: 050
  20. RITUXAN [Suspect]
     Active Substance: RITUXIMAB
     Dosage: 1 G, BID 1 G, BID (NOT OTHERWISE SPECIFIED)
     Route: 050
  21. RITUXAN [Suspect]
     Active Substance: RITUXIMAB
     Route: 050
  22. RITUXAN [Suspect]
     Active Substance: RITUXIMAB
     Dosage: 2 G, Q24H (NOT OTHERWISE SPECIFIED)
     Route: 050
  23. RITUXAN [Suspect]
     Active Substance: RITUXIMAB
     Dosage: 1000 MG, BID (NOT OTHERWISE SPECIFIED)
     Route: 050
  24. RITUXAN [Suspect]
     Active Substance: RITUXIMAB
     Dosage: 2 G, QD (NOT OTHERWISE SPECIFIED)
     Route: 050
  25. RITUXAN [Suspect]
     Active Substance: RITUXIMAB
     Dosage: 1 G, Q12H
     Route: 065
  26. RITUXAN [Suspect]
     Active Substance: RITUXIMAB
     Dosage: 2000 MG, QD (NOT OTHERWISE SPECIFIED)
     Route: 050
  27. RITUXAN [Suspect]
     Active Substance: RITUXIMAB
     Route: 050
  28. RITUXAN [Suspect]
     Active Substance: RITUXIMAB
     Route: 050
  29. RITUXAN [Suspect]
     Active Substance: RITUXIMAB
     Dosage: 1000 MG, BID
     Route: 050
  30. RITUXAN [Suspect]
     Active Substance: RITUXIMAB
     Route: 050
  31. RITUXAN [Suspect]
     Active Substance: RITUXIMAB
     Route: 050
  32. RITUXAN [Suspect]
     Active Substance: RITUXIMAB
     Dosage: 2000 MG, QD (NOT OTHERWISE SPECIFIED)
     Route: 050
  33. RITUXAN [Suspect]
     Active Substance: RITUXIMAB
     Dosage: 2 G, QD (NOT OTHERWISE SPECIFIED)
     Route: 050
  34. RITUXAN [Suspect]
     Active Substance: RITUXIMAB
     Route: 050
  35. RITUXAN [Suspect]
     Active Substance: RITUXIMAB
     Dosage: 2000 MG, QD (NOT OTHERWISE SPECIFIED)
     Route: 050
  36. RITUXAN [Suspect]
     Active Substance: RITUXIMAB
     Route: 065
  37. RITUXAN [Suspect]
     Active Substance: RITUXIMAB
     Dosage: 2000 MG, QD (NOT OTHERWISE SPECIFIED)
     Route: 050
  38. RITUXAN [Suspect]
     Active Substance: RITUXIMAB
     Route: 050
  39. RITUXAN [Suspect]
     Active Substance: RITUXIMAB
     Dosage: 2000 MG, QD (NOT OTHERWISE SPECIFIED)
     Route: 050
  40. RANITIDINE [Suspect]
     Active Substance: RANITIDINE
     Indication: Product used for unknown indication
     Route: 065
  41. NUCALA [Suspect]
     Active Substance: MEPOLIZUMAB
     Indication: Product used for unknown indication
     Route: 065
  42. ERELZI [Suspect]
     Active Substance: ETANERCEPT-SZZS
     Indication: Rheumatoid arthritis
     Route: 065
  43. ETANERCEPT [Suspect]
     Active Substance: ETANERCEPT
     Indication: Rheumatoid arthritis
     Route: 050
  44. ETANERCEPT [Suspect]
     Active Substance: ETANERCEPT
     Route: 065
  45. SULFASALAZINE [Suspect]
     Active Substance: SULFASALAZINE
     Indication: Rheumatoid arthritis
     Route: 065
  46. SULFASALAZINE [Suspect]
     Active Substance: SULFASALAZINE
     Route: 050
  47. SULFASALAZINE [Suspect]
     Active Substance: SULFASALAZINE
     Route: 050
  48. MINOCYCLINE HYDROCHLORIDE [Suspect]
     Active Substance: MINOCYCLINE HYDROCHLORIDE
     Indication: Rheumatoid arthritis
     Route: 065
  49. GOLD SODIUM THIOMALATE [Suspect]
     Active Substance: GOLD SODIUM THIOMALATE
     Indication: Product used for unknown indication
     Route: 050
  50. GOLD SODIUM THIOMALATE [Suspect]
     Active Substance: GOLD SODIUM THIOMALATE
     Route: 050
  51. GOLD SODIUM THIOMALATE [Suspect]
     Active Substance: GOLD SODIUM THIOMALATE
     Route: 050
  52. OXYCODONE TEREPHTHALATE [Suspect]
     Active Substance: OXYCODONE TEREPHTHALATE
     Indication: Product used for unknown indication
     Route: 065
  53. AZATHIOPRINE SODIUM [Suspect]
     Active Substance: AZATHIOPRINE SODIUM
     Indication: Product used for unknown indication
     Route: 065
  54. XELJANZ [Suspect]
     Active Substance: TOFACITINIB CITRATE
     Indication: Rheumatoid arthritis
     Dosage: 10 MG, QD
     Route: 050
  55. XELJANZ [Suspect]
     Active Substance: TOFACITINIB CITRATE
     Dosage: 10 MG, QD
     Route: 050
  56. XELJANZ [Suspect]
     Active Substance: TOFACITINIB CITRATE
     Dosage: 5 MG, BID
     Route: 050
  57. XELJANZ [Suspect]
     Active Substance: TOFACITINIB CITRATE
     Route: 050
  58. XELJANZ [Suspect]
     Active Substance: TOFACITINIB CITRATE
     Dosage: 240 MG, QD
     Route: 065
  59. XELJANZ [Suspect]
     Active Substance: TOFACITINIB CITRATE
     Dosage: 5 MG, BID
     Route: 050
  60. XELJANZ [Suspect]
     Active Substance: TOFACITINIB CITRATE
     Dosage: 5 MG, BID
     Route: 050
  61. ERGOCALCIFEROL [Suspect]
     Active Substance: ERGOCALCIFEROL
     Indication: Rheumatoid arthritis
     Route: 065
  62. RIBOFLAVIN [Suspect]
     Active Substance: RIBOFLAVIN
     Indication: Product used for unknown indication
     Route: 065
  63. REMICADE [Suspect]
     Active Substance: INFLIXIMAB
     Indication: Rheumatoid arthritis
     Route: 050
  64. REMICADE [Suspect]
     Active Substance: INFLIXIMAB
     Route: 050
  65. REMICADE [Suspect]
     Active Substance: INFLIXIMAB
     Route: 050
  66. REMICADE [Suspect]
     Active Substance: INFLIXIMAB
     Dosage: 2000 MG, QD (1000 MG, BID (POWDER FOR SOLUTION))
     Route: 050
  67. REMICADE [Suspect]
     Active Substance: INFLIXIMAB
     Route: 050
  68. REMICADE [Suspect]
     Active Substance: INFLIXIMAB
     Route: 050
  69. REMICADE [Suspect]
     Active Substance: INFLIXIMAB
     Dosage: 2000 MG, QD
     Route: 040
  70. REMICADE [Suspect]
     Active Substance: INFLIXIMAB
     Dosage: 500 MG, QD
     Route: 065
  71. REMICADE [Suspect]
     Active Substance: INFLIXIMAB
     Dosage: 500 MG, QD (POWDER FOR SOLUTION INTRAVENOUS)
     Route: 050
  72. REMICADE [Suspect]
     Active Substance: INFLIXIMAB
     Route: 050
  73. REMICADE [Suspect]
     Active Substance: INFLIXIMAB
     Route: 050
  74. REMICADE [Suspect]
     Active Substance: INFLIXIMAB
     Route: 040
  75. REMICADE [Suspect]
     Active Substance: INFLIXIMAB
     Dosage: 2000 MG, QD (POWDER FOR SOLUTION)
     Route: 050
  76. REMICADE [Suspect]
     Active Substance: INFLIXIMAB
     Route: 040
  77. REMICADE [Suspect]
     Active Substance: INFLIXIMAB
     Dosage: 500 MG, QD
     Route: 065
  78. REMICADE [Suspect]
     Active Substance: INFLIXIMAB
     Route: 040
  79. REMICADE [Suspect]
     Active Substance: INFLIXIMAB
     Route: 050
  80. REMICADE [Suspect]
     Active Substance: INFLIXIMAB
     Route: 050
  81. REMICADE [Suspect]
     Active Substance: INFLIXIMAB
     Route: 040
  82. REMICADE [Suspect]
     Active Substance: INFLIXIMAB
     Route: 040
  83. REMICADE [Suspect]
     Active Substance: INFLIXIMAB
     Route: 050
  84. REMICADE [Suspect]
     Active Substance: INFLIXIMAB
     Dosage: 2000 MG, QD
     Route: 040
  85. REMICADE [Suspect]
     Active Substance: INFLIXIMAB
     Route: 050
  86. REMICADE [Suspect]
     Active Substance: INFLIXIMAB
     Route: 040
  87. REMICADE [Suspect]
     Active Substance: INFLIXIMAB
     Route: 050
  88. SIRUKUMAB [Suspect]
     Active Substance: SIRUKUMAB
     Indication: Product used for unknown indication
     Route: 065
  89. LEFLUNOMIDE [Suspect]
     Active Substance: LEFLUNOMIDE
     Indication: Rheumatoid arthritis
     Dosage: 10 MG, QD
     Route: 050
  90. LEFLUNOMIDE [Suspect]
     Active Substance: LEFLUNOMIDE
     Dosage: 20 MG, QD
     Route: 065
  91. LEFLUNOMIDE [Suspect]
     Active Substance: LEFLUNOMIDE
     Route: 065
  92. PSEUDOEPHEDRINE [Suspect]
     Active Substance: PSEUDOEPHEDRINE
     Indication: Rheumatoid arthritis
     Route: 065
  93. PSEUDOEPHEDRINE [Suspect]
     Active Substance: PSEUDOEPHEDRINE
     Route: 065
  94. PSEUDOEPHEDRINE [Suspect]
     Active Substance: PSEUDOEPHEDRINE
     Route: 065
  95. PSEUDOEPHEDRINE [Suspect]
     Active Substance: PSEUDOEPHEDRINE
     Route: 065
  96. ADALIMUMAB [Suspect]
     Active Substance: ADALIMUMAB
     Indication: Rheumatoid arthritis
     Route: 065
  97. ADALIMUMAB [Suspect]
     Active Substance: ADALIMUMAB
     Route: 050
  98. ADALIMUMAB [Suspect]
     Active Substance: ADALIMUMAB
     Route: 050
  99. ADALIMUMAB [Suspect]
     Active Substance: ADALIMUMAB
     Route: 050
  100. HAIR KERATIN AMINO ACIDS GOLD COMPLEX [Suspect]
     Active Substance: HAIR KERATIN AMINO ACIDS GOLD COMPLEX
     Indication: Product used for unknown indication
     Route: 065
  101. DICLOFENAC SODIUM [Suspect]
     Active Substance: DICLOFENAC SODIUM
     Indication: Rheumatoid arthritis
     Route: 065
  102. DICLOFENAC SODIUM [Suspect]
     Active Substance: DICLOFENAC SODIUM
     Route: 065
  103. SIMPONI [Suspect]
     Active Substance: GOLIMUMAB
     Indication: Rheumatoid arthritis
     Route: 050
  104. HYDROXYCHLOROQUINE [Suspect]
     Active Substance: HYDROXYCHLOROQUINE
     Indication: Product used for unknown indication
     Route: 065
  105. STELARA [Suspect]
     Active Substance: USTEKINUMAB
     Indication: Rheumatoid arthritis
     Route: 050
  106. BOTULINUM TOXIN TYPE A [Suspect]
     Active Substance: BOTULINUM TOXIN TYPE A
     Indication: Rheumatoid arthritis
     Route: 065
  107. SULFAMETHOXAZOLE AND TRIMETHOPRIM [Suspect]
     Active Substance: SULFAMETHOXAZOLE\TRIMETHOPRIM
     Indication: Rheumatoid arthritis
     Route: 050
  108. SULFAMETHOXAZOLE AND TRIMETHOPRIM [Suspect]
     Active Substance: SULFAMETHOXAZOLE\TRIMETHOPRIM
     Dosage: 10 MG, QD
     Route: 050
  109. GOLIMUMAB [Suspect]
     Active Substance: GOLIMUMAB
     Indication: Rheumatoid arthritis
     Route: 065
  110. CETIRIZINE HYDROCHLORIDE [Suspect]
     Active Substance: CETIRIZINE HYDROCHLORIDE
     Indication: Rheumatoid arthritis
     Route: 050
  111. CETIRIZINE HYDROCHLORIDE [Suspect]
     Active Substance: CETIRIZINE HYDROCHLORIDE
     Route: 050
  112. CETIRIZINE HYDROCHLORIDE [Suspect]
     Active Substance: CETIRIZINE HYDROCHLORIDE
     Route: 050
  113. CETIRIZINE HYDROCHLORIDE [Suspect]
     Active Substance: CETIRIZINE HYDROCHLORIDE
     Route: 050
  114. CETIRIZINE HYDROCHLORIDE [Suspect]
     Active Substance: CETIRIZINE HYDROCHLORIDE
     Route: 050
  115. CETIRIZINE HYDROCHLORIDE [Suspect]
     Active Substance: CETIRIZINE HYDROCHLORIDE
     Route: 050
  116. CETIRIZINE HYDROCHLORIDE [Suspect]
     Active Substance: CETIRIZINE HYDROCHLORIDE
     Route: 050
  117. CETIRIZINE HYDROCHLORIDE [Suspect]
     Active Substance: CETIRIZINE HYDROCHLORIDE
     Route: 050
  118. CETIRIZINE HYDROCHLORIDE [Suspect]
     Active Substance: CETIRIZINE HYDROCHLORIDE
     Route: 050
  119. CETIRIZINE HYDROCHLORIDE [Suspect]
     Active Substance: CETIRIZINE HYDROCHLORIDE
     Route: 050

REACTIONS (46)
  - Infusion related reaction [Fatal]
  - Pain [Fatal]
  - Psoriatic arthropathy [Fatal]
  - Malaise [Fatal]
  - Rash [Fatal]
  - Injection site reaction [Fatal]
  - Joint swelling [Fatal]
  - Neck pain [Fatal]
  - Memory impairment [Fatal]
  - Pneumonia [Fatal]
  - Nail disorder [Fatal]
  - Liver injury [Fatal]
  - Obesity [Fatal]
  - Paraesthesia [Fatal]
  - Insomnia [Fatal]
  - Lip dry [Fatal]
  - Night sweats [Fatal]
  - Pericarditis [Fatal]
  - Mobility decreased [Fatal]
  - Irritable bowel syndrome [Fatal]
  - Stomatitis [Fatal]
  - Lung disorder [Fatal]
  - Muscle injury [Fatal]
  - Osteoarthritis [Fatal]
  - Nausea [Fatal]
  - Nasopharyngitis [Fatal]
  - Onychomadesis [Fatal]
  - Pemphigus [Fatal]
  - Rheumatic fever [Fatal]
  - Rheumatoid arthritis [Fatal]
  - Abdominal discomfort [Fatal]
  - Musculoskeletal stiffness [Fatal]
  - Migraine [Fatal]
  - Lower respiratory tract infection [Fatal]
  - Synovitis [Fatal]
  - Pain in extremity [Fatal]
  - Muscular weakness [Fatal]
  - Injury [Fatal]
  - Muscle spasms [Fatal]
  - Sleep disorder [Fatal]
  - Systemic lupus erythematosus [Fatal]
  - Swelling [Fatal]
  - Peripheral swelling [Fatal]
  - Joint range of motion decreased [Fatal]
  - Onychomycosis [Fatal]
  - Liver function test increased [Fatal]
